FAERS Safety Report 6104266-1 (Version None)
Quarter: 2009Q1

REPORT INFORMATION
  Report Type: 
  Country: None (occurrence: None)
  Receive Date: 20090302
  Receipt Date: 20090217
  Transmission Date: 20090719
  Serious: Yes (Death, Hospitalization)
  Sender: FDA-Public Use
  Company Number: 2009SP004295

PATIENT
  Age: 58 Year
  Sex: Female

DRUGS (4)
  1. TEMODAL [Suspect]
     Indication: GLIOMA
     Dosage: 140 MG; PO; 350 MG; PO
     Route: 048
     Dates: start: 20050301
  2. TEMODAL [Suspect]
     Indication: GLIOMA
     Dosage: 140 MG; PO; 350 MG; PO
     Route: 048
     Dates: start: 20050501
  3. TEMODAL [Suspect]
     Indication: GLIOMA
     Dosage: 140 MG; PO; 350 MG; PO
     Route: 048
     Dates: start: 20050601
  4. TEGRETOL (CON.) [Concomitant]

REACTIONS (9)
  - APHASIA [None]
  - BRAIN OEDEMA [None]
  - DRUG RESISTANCE [None]
  - EPILEPSY [None]
  - HAEMORRHAGE INTRACRANIAL [None]
  - HEMIPLEGIA [None]
  - MALIGNANT NEOPLASM PROGRESSION [None]
  - NEUROLOGICAL SYMPTOM [None]
  - TEARFULNESS [None]
